FAERS Safety Report 26189519 (Version 1)
Quarter: 2025Q4

REPORT INFORMATION
  Report Type: Spontaneous
  Country: CN (occurrence: CN)
  Receive Date: 20251223
  Receipt Date: 20251223
  Transmission Date: 20260118
  Serious: Yes (Disabling, Other)
  Sender: ORGANON
  Company Number: CN-ORGANON-O2512CHN001755

PATIENT
  Age: 75 Year
  Sex: Female
  Weight: 43 kg

DRUGS (7)
  1. REMERON [Suspect]
     Active Substance: MIRTAZAPINE
     Indication: Depression
     Dosage: 15MG, QN, ORALLY
     Route: 061
     Dates: start: 20251115, end: 20251128
  2. SERTRALINE HYDROCHLORIDE [Suspect]
     Active Substance: SERTRALINE HYDROCHLORIDE
     Indication: Generalised anxiety disorder
     Dosage: 25MG, QD, ORALLY
     Route: 061
     Dates: start: 20251115, end: 20251116
  3. SERTRALINE HYDROCHLORIDE [Suspect]
     Active Substance: SERTRALINE HYDROCHLORIDE
     Dosage: 50MG, QD, ORALLY
     Route: 061
     Dates: start: 20251117, end: 20251123
  4. SERTRALINE HYDROCHLORIDE [Suspect]
     Active Substance: SERTRALINE HYDROCHLORIDE
     Dosage: 75MG, QD, ORALLY
     Route: 061
     Dates: start: 20251124, end: 20251130
  5. LORAZEPAM [Suspect]
     Active Substance: LORAZEPAM
     Indication: Generalised anxiety disorder
     Dosage: 0.25MG, TID, ORALLY
     Route: 061
     Dates: start: 20251115, end: 20251116
  6. LORAZEPAM [Suspect]
     Active Substance: LORAZEPAM
     Dosage: 0.25MG, BID, ORALLY
     Route: 061
     Dates: start: 20251117, end: 20251121
  7. LORAZEPAM [Suspect]
     Active Substance: LORAZEPAM
     Dosage: 0.125MG, BID, ORALLY
     Route: 061
     Dates: start: 20251122, end: 20251128

REACTIONS (2)
  - Hepatic enzyme increased [Recovering/Resolving]
  - Drug-induced liver injury [Recovering/Resolving]

NARRATIVE: CASE EVENT DATE: 20251129
